FAERS Safety Report 8456099 (Version 5)
Quarter: 2014Q1

REPORT INFORMATION
  Report Type: Report from Study
  Country: BR (occurrence: BR)
  Receive Date: 20120313
  Receipt Date: 20140213
  Transmission Date: 20141002
  Serious: Yes (Other)
  Sender: FDA-Public Use
  Company Number: BR-ROCHE-1044366

PATIENT
  Sex: Female
  Weight: 68 kg

DRUGS (19)
  1. MABTHERA [Suspect]
     Indication: RHEUMATOID ARTHRITIS
     Dosage: 100MG/10ML
     Route: 042
     Dates: start: 20100101, end: 20110714
  2. ONGLYZA [Concomitant]
  3. SELOZOK [Concomitant]
  4. LASIX [Concomitant]
  5. ALDACTONE (BRAZIL) [Concomitant]
  6. PRESSAT [Concomitant]
  7. VASOPRIL (BRAZIL) [Concomitant]
  8. AAS [Concomitant]
  9. PURAN T4 [Concomitant]
  10. TRAMADOL [Concomitant]
  11. LIMBITROL [Concomitant]
  12. FOLIC ACID [Concomitant]
  13. PREDNISONE [Concomitant]
  14. GLIMEPIRIDE [Concomitant]
     Indication: DIABETES MELLITUS
  15. PURAN T4 [Concomitant]
     Indication: HYPERTHYROIDISM
  16. DIMETHICONE [Concomitant]
  17. DEFLAZACORT [Concomitant]
  18. METHOTREXATE [Concomitant]
  19. ZOLPIDEM [Concomitant]

REACTIONS (15)
  - Urinary tract infection [Unknown]
  - Nephropathy [Unknown]
  - Renal failure [Unknown]
  - Diverticulitis [Recovering/Resolving]
  - Dermatitis allergic [Not Recovered/Not Resolved]
  - Skin burning sensation [Not Recovered/Not Resolved]
  - Pruritus [Not Recovered/Not Resolved]
  - Diarrhoea [Not Recovered/Not Resolved]
  - Anal inflammation [Recovered/Resolved]
  - Abdominal discomfort [Not Recovered/Not Resolved]
  - Bundle branch block left [Not Recovered/Not Resolved]
  - Skin lesion [Not Recovered/Not Resolved]
  - Cough [Unknown]
  - Pharyngeal disorder [Unknown]
  - Arthralgia [Unknown]
